FAERS Safety Report 9663693 (Version 1)
Quarter: 2013Q4

REPORT INFORMATION
  Report Type: Report from Study
  Country: US (occurrence: US)
  Receive Date: 20131101
  Receipt Date: 20131101
  Transmission Date: 20140711
  Serious: Yes (Death)
  Sender: FDA-Public Use
  Company Number: PHEH2013US022900

PATIENT
  Sex: Female

DRUGS (5)
  1. AFINITOR [Suspect]
     Indication: OVARIAN CANCER
     Dosage: 5 MG, QD
     Route: 048
     Dates: start: 20130430
  2. AFINITOR [Suspect]
     Indication: OFF LABEL USE
  3. LUPRON [Concomitant]
  4. TARCEVA [Concomitant]
  5. PROCRIT//ERYTHROPOIETIN [Concomitant]

REACTIONS (1)
  - Death [Fatal]
